FAERS Safety Report 10780387 (Version 1)
Quarter: 2015Q1

REPORT INFORMATION
  Report Type: Spontaneous
  Country: US (occurrence: US)
  Receive Date: 20150210
  Receipt Date: 20150210
  Transmission Date: 20150721
  Serious: No
  Sender: FDA-Public Use
  Company Number: US-GLAXOSMITHKLINE-A1051400A

PATIENT

DRUGS (2)
  1. NICODERM CQ [Suspect]
     Active Substance: NICOTINE
     Indication: EX-TOBACCO USER
     Dates: start: 20131123, end: 20131123
  2. NICODERM CQ [Suspect]
     Active Substance: NICOTINE
     Indication: EX-TOBACCO USER
     Dates: start: 20131125, end: 20131125

REACTIONS (7)
  - Drug administration error [Unknown]
  - Adverse event [Recovered/Resolved]
  - Initial insomnia [Recovered/Resolved]
  - Malaise [Recovered/Resolved]
  - Insomnia [Recovered/Resolved]
  - Anxiety [Recovered/Resolved]
  - Abnormal dreams [Recovered/Resolved]

NARRATIVE: CASE EVENT DATE: 20131123
